FAERS Safety Report 14613236 (Version 3)
Quarter: 2018Q1

REPORT INFORMATION
  Report Type: Spontaneous
  Country: US (occurrence: US)
  Receive Date: 20180308
  Receipt Date: 20180319
  Transmission Date: 20180509
  Serious: Yes (Hospitalization, Other)
  Sender: FDA-Public Use
  Company Number: US-PFIZER INC-2018094051

PATIENT
  Age: 44 Year
  Sex: Male

DRUGS (1)
  1. SULFAMETHOXAZOLE/TRIMETHOPRIM [Suspect]
     Active Substance: SULFAMETHOXAZOLE\TRIMETHOPRIM
     Indication: PNEUMOCYSTIS JIROVECII PNEUMONIA
     Dosage: UNK (DOUBLE-STRENGTH TMP/SMX)

REACTIONS (5)
  - Aspartate aminotransferase increased [None]
  - Drug-induced liver injury [None]
  - Blood alkaline phosphatase increased [None]
  - Drug-induced liver injury [Recovered/Resolved]
  - Alanine aminotransferase increased [None]
